FAERS Safety Report 7602331-0 (Version None)
Quarter: 2011Q3

REPORT INFORMATION
  Report Type: 
  Country: None (occurrence: None)
  Receive Date: 20110712
  Receipt Date: 20110705
  Transmission Date: 20111222
  Serious: Yes (Hospitalization)
  Sender: FDA-Public Use
  Company Number: US-BIOGENIDEC-2011BI016125

PATIENT
  Age: 59 Year
  Sex: Female

DRUGS (2)
  1. TYSABRI [Suspect]
     Indication: MULTIPLE SCLEROSIS
     Route: 042
     Dates: start: 20110210
  2. TYSABRI [Suspect]
     Route: 042
     Dates: start: 20061024, end: 20081020

REACTIONS (17)
  - NASOPHARYNGITIS [None]
  - DYSPHAGIA [None]
  - OSTEOPENIA [None]
  - THYROID NEOPLASM [None]
  - COUGH [None]
  - VITAMIN D DEFICIENCY [None]
  - DIARRHOEA [None]
  - MEMORY IMPAIRMENT [None]
  - HEART RATE IRREGULAR [None]
  - POST PROCEDURAL INFECTION [None]
  - TOOTH INFECTION [None]
  - ENDODONTIC PROCEDURE [None]
  - ARRHYTHMIA [None]
  - URINARY TRACT INFECTION [None]
  - VOMITING [None]
  - ATRIAL FIBRILLATION [None]
  - CONSTIPATION [None]
